FAERS Safety Report 5331087-X (Version None)
Quarter: 2007Q2

REPORT INFORMATION
  Report Type: 
  Country: None (occurrence: None)
  Receive Date: 20070518
  Receipt Date: 20070518
  Transmission Date: 20071010
  Serious: Yes (Hospitalization)
  Sender: FDA-Public Use
  Company Number: None

PATIENT
  Age: 67 Year
  Sex: Female
  Weight: 44 kg

DRUGS (13)
  1. BEVACIZUMAB [Suspect]
     Indication: PANCREATIC CARCINOMA METASTATIC
     Dosage: 10MG/M2 IV BOLUS
     Route: 040
     Dates: start: 20061208, end: 20070406
  2. ERLOTINIB [Suspect]
     Indication: PANCREATIC CARCINOMA METASTATIC
     Dosage: 100MG/M2 ORAL
     Route: 048
     Dates: start: 20070416, end: 20070504
  3. GEMCITABINE [Suspect]
     Indication: PANCREATIC CARCINOMA METASTATIC
     Dosage: 1000MG/M2 IV BOLUS
     Route: 040
     Dates: start: 20061208, end: 20070202
  4. GEMCITABINE [Suspect]
     Indication: PANCREATIC CARCINOMA METASTATIC
     Dosage: 750MG/M2 IV BOLUS
     Route: 040
     Dates: start: 20070209, end: 20070413
  5. AMBIEN [Concomitant]
  6. ACETYLSALICYLIC ACID SRT [Concomitant]
  7. COMPAZINE [Concomitant]
  8. CREON [Concomitant]
  9. LIPITOR [Concomitant]
  10. PRILOSEC [Concomitant]
  11. RITALIN-SR [Concomitant]
  12. TYLENOL [Concomitant]
  13. ZOFRAN [Concomitant]

REACTIONS (4)
  - DISEASE PROGRESSION [None]
  - FAECES DISCOLOURED [None]
  - HAEMATOCRIT DECREASED [None]
  - UPPER GASTROINTESTINAL HAEMORRHAGE [None]
